FAERS Safety Report 11109493 (Version 1)
Quarter: 2015Q2

REPORT INFORMATION
  Report Type: Spontaneous
  Country: TR (occurrence: TR)
  Receive Date: 20150513
  Receipt Date: 20150513
  Transmission Date: 20150821
  Serious: Yes (Other)
  Sender: FDA-Public Use
  Company Number: TR-BIOTEST-T 376/15

PATIENT
  Sex: Female
  Weight: 2.5 kg

DRUGS (1)
  1. IVIG (NOT BIOTEST) [Suspect]
     Active Substance: HUMAN IMMUNOGLOBULIN G
     Route: 042

REACTIONS (1)
  - Appendicitis [Recovered/Resolved]
